FAERS Safety Report 9730808 (Version 1)
Quarter: 2013Q4

REPORT INFORMATION
  Report Type: Spontaneous
  Country: IT (occurrence: IT)
  Receive Date: 20131202
  Receipt Date: 20131202
  Transmission Date: 20140711
  Serious: Yes (Hospitalization)
  Sender: FDA-Public Use
  Company Number: IT-TEVA-446501ISR

PATIENT
  Age: 69 Year
  Sex: Male
  Weight: 60 kg

DRUGS (1)
  1. OXALIPLATINO TEVA [Suspect]
     Indication: NEOPLASM MALIGNANT
     Dosage: 160 MILLIGRAM DAILY; SOLUTION FOR ENDOVENOUS INFUSION
     Dates: start: 20131104, end: 20131104

REACTIONS (5)
  - Oedema [Recovered/Resolved]
  - Confusional state [Recovered/Resolved]
  - Asthenia [Recovered/Resolved]
  - Extravasation [Recovered/Resolved]
  - Wrong technique in drug usage process [Recovered/Resolved]
